FAERS Safety Report 8474393-2 (Version None)
Quarter: 2012Q2

REPORT INFORMATION
  Report Type: 
  Country: None (occurrence: None)
  Receive Date: 20120621
  Receipt Date: 20120613
  Transmission Date: 20120825
  Serious: Yes (Life-Threatening, Hospitalization, Disabling, Other)
  Sender: FDA-Public Use
  Company Number: DKLU1076767

PATIENT
  Age: 8 Year
  Sex: Male
  Weight: 55 kg

DRUGS (10)
  1. DEPAKENE [Concomitant]
  2. TRAZODONE HCL [Concomitant]
  3. ONFI [Suspect]
     Indication: CONVULSION
     Dosage: ORAL, AT BEDTIME, ORAL, 10 MG MILLIGRAM(S), AT BEDTIME, ORAL
     Route: 048
     Dates: start: 20120120
  4. ONFI [Suspect]
     Indication: EPILEPSY
     Dosage: ORAL, AT BEDTIME, ORAL, 10 MG MILLIGRAM(S), AT BEDTIME, ORAL
     Route: 048
     Dates: start: 20120120
  5. ONFI [Suspect]
     Indication: CONVULSION
     Dosage: ORAL, AT BEDTIME, ORAL, 10 MG MILLIGRAM(S), AT BEDTIME, ORAL
     Route: 048
     Dates: start: 20120103
  6. ONFI [Suspect]
     Indication: EPILEPSY
     Dosage: ORAL, AT BEDTIME, ORAL, 10 MG MILLIGRAM(S), AT BEDTIME, ORAL
     Route: 048
     Dates: start: 20120103
  7. DEPAKOTE [Concomitant]
  8. TOPAMAX [Concomitant]
  9. ZARONTIN [Concomitant]
  10. NEURONTIN [Concomitant]

REACTIONS (8)
  - IMPETIGO [None]
  - DYSPNOEA [None]
  - PAIN [None]
  - TOXIC EPIDERMAL NECROLYSIS [None]
  - SKIN GRAFT [None]
  - STEVENS-JOHNSON SYNDROME [None]
  - BLINDNESS [None]
  - DEFORMITY [None]
